FAERS Safety Report 23285122 (Version 1)
Quarter: 2023Q4

REPORT INFORMATION
  Report Type: Spontaneous
  Country: US (occurrence: None)
  Receive Date: 20231211
  Receipt Date: 20231211
  Transmission Date: 20240110
  Serious: No
  Sender: FDA-Public Use
  Company Number: 2023A274182

PATIENT
  Sex: Male
  Weight: 79.8 kg

DRUGS (5)
  1. CALQUENCE [Suspect]
     Active Substance: ACALABRUTINIB
     Indication: Chronic lymphocytic leukaemia
     Route: 048
     Dates: start: 20230731
  2. ALLOPURINOL [Concomitant]
     Active Substance: ALLOPURINOL
  3. DOXYCYCLINE [Concomitant]
     Active Substance: DOXYCYCLINE
  4. NORCO [Concomitant]
     Active Substance: ACETAMINOPHEN\HYDROCODONE BITARTRATE
  5. GAZYVA [Concomitant]
     Active Substance: OBINUTUZUMAB

REACTIONS (1)
  - Muscle spasms [Not Recovered/Not Resolved]
